FAERS Safety Report 6633864-1 (Version None)
Quarter: 2010Q1

REPORT INFORMATION
  Report Type: 
  Country: None (occurrence: None)
  Receive Date: 20100309
  Receipt Date: 20100301
  Transmission Date: 20100710
  Serious: Yes (Other)
  Sender: FDA-Public Use
  Company Number: URSO-2010-030

PATIENT
  Age: 26 Year
  Sex: Female

DRUGS (4)
  1. URSODEOXYCHOLIC ACID [Suspect]
     Indication: CHOLESTASIS
     Dosage: 500 MG BID, 500 MG TID, ORAL, 28 WEEKS - 32 WEEKS OF GESTATION
     Route: 048
  2. URSODEOXYCHOLIC ACID [Suspect]
     Indication: PREGNANCY
     Dosage: 500 MG BID, 500 MG TID, ORAL, 28 WEEKS - 32 WEEKS OF GESTATION
     Route: 048
  3. VITAMIN K TAB [Concomitant]
  4. AQUEOUS MENTHOL CREAM [Concomitant]

REACTIONS (12)
  - ALANINE AMINOTRANSFERASE INCREASED [None]
  - ASPARTATE AMINOTRANSFERASE INCREASED [None]
  - CHOLELITHIASIS [None]
  - CHROMATURIA [None]
  - CONDITION AGGRAVATED [None]
  - DRUG EXPOSURE DURING PREGNANCY [None]
  - DRUG INEFFECTIVE FOR UNAPPROVED INDICATION [None]
  - MIXED HYPERLIPIDAEMIA [None]
  - PREMATURE LABOUR [None]
  - PRURITUS [None]
  - TOTAL BILE ACIDS INCREASED [None]
  - VOMITING [None]
